FAERS Safety Report 15668399 (Version 1)
Quarter: 2018Q4

REPORT INFORMATION
  Report Type: Spontaneous
  Country: DE (occurrence: DE)
  Receive Date: 20181129
  Receipt Date: 20181129
  Transmission Date: 20190205
  Serious: Yes (Disabling)
  Sender: FDA-Public Use
  Company Number: DE-TEVA-2018-DE-979313

PATIENT
  Age: 70 Year
  Sex: Female
  Weight: 76 kg

DRUGS (3)
  1. CIPROFLOXACIN. [Suspect]
     Active Substance: CIPROFLOXACIN
     Dosage: 250 MG OR 2 X 250 MG THE
     Route: 048
     Dates: start: 20080101, end: 20181009
  2. OLMESARTAN 40/5 [Concomitant]
     Indication: HYPERTENSION
     Route: 065
  3. L-THYROXIN 75 [Concomitant]
     Active Substance: LEVOTHYROXINE
     Indication: AUTOIMMUNE THYROIDITIS
     Dosage: 75 MCG
     Route: 065

REACTIONS (13)
  - Gait inability [Unknown]
  - Dysaesthesia [Recovered/Resolved with Sequelae]
  - Tendonitis [Recovered/Resolved with Sequelae]
  - Nail psoriasis [Unknown]
  - Aortic dilatation [Recovered/Resolved with Sequelae]
  - Pain [Unknown]
  - Movement disorder [Unknown]
  - Psoriatic arthropathy [Unknown]
  - Limb discomfort [Unknown]
  - Tendon rupture [Recovered/Resolved with Sequelae]
  - Tendon rupture [Recovered/Resolved with Sequelae]
  - Plantar fasciitis [Recovered/Resolved with Sequelae]
  - Hypoaesthesia [Unknown]

NARRATIVE: CASE EVENT DATE: 20100601
